FAERS Safety Report 20125705 (Version 1)
Quarter: 2021Q4

REPORT INFORMATION
  Report Type: Spontaneous
  Country: PT (occurrence: PT)
  Receive Date: 20211129
  Receipt Date: 20211129
  Transmission Date: 20220303
  Serious: Yes (Other)
  Sender: FDA-Public Use
  Company Number: None

PATIENT
  Age: 68 Year
  Sex: Female
  Weight: 76 kg

DRUGS (2)
  1. SERTRALINE HYDROCHLORIDE [Suspect]
     Active Substance: SERTRALINE HYDROCHLORIDE
     Indication: Depression
     Dosage: 50 MILLIGRAM, QD, DEPRESSION , HALF A TABLET ONCE A DAY FOR 1 WEEK AND THEN 1 A DAY
     Route: 048
     Dates: start: 20210127, end: 20210130
  2. CINNARIZINE [Suspect]
     Active Substance: CINNARIZINE
     Indication: Vertigo
     Dosage: 75 MILLIGRAM, QD (1 IN THE MORNING)
     Route: 048
     Dates: start: 20210127, end: 20210130

REACTIONS (4)
  - Joint swelling [Recovered/Resolved]
  - Erythema [Recovered/Resolved]
  - Face oedema [Recovered/Resolved]
  - Oedema peripheral [Recovered/Resolved]

NARRATIVE: CASE EVENT DATE: 20210127
